FAERS Safety Report 8176518-5 (Version None)
Quarter: 2012Q1

REPORT INFORMATION
  Report Type: 
  Country: None (occurrence: None)
  Receive Date: 20120119
  Receipt Date: 20110523
  Transmission Date: 20120608
  Serious: Yes (Other)
  Sender: FDA-Public Use
  Company Number: IMP_05376_2011

PATIENT
  Sex: Male

DRUGS (1)
  1. BUPROPION HCL [Suspect]
     Indication: PRODUCT USED FOR UNKNOWN INDICATION
     Dosage: DF ORAL
     Route: 048

REACTIONS (4)
  - DEPRESSION [None]
  - PRODUCT QUALITY ISSUE [None]
  - DRUG INEFFECTIVE [None]
  - SUICIDAL IDEATION [None]
